FAERS Safety Report 10063275 (Version 1)
Quarter: 2014Q2

REPORT INFORMATION
  Report Type: Spontaneous
  Country: US (occurrence: US)
  Receive Date: 20140407
  Receipt Date: 20140407
  Transmission Date: 20141212
  Serious: Yes (Other)
  Sender: FDA-Public Use
  Company Number: US-BAYER-2014-050435

PATIENT
  Age: 56 Year
  Sex: Male
  Weight: 98 kg

DRUGS (8)
  1. ALEVE LIQUID GELS [Suspect]
     Route: 048
  2. BAYER ASPIRIN REGIMEN ADULT LOW STRENGTH [Suspect]
  3. LORATADINE [Concomitant]
  4. LOSARTAN [Concomitant]
  5. METOPROLOL [Concomitant]
  6. METFORMIN [Concomitant]
  7. SIMVASTATIN [Concomitant]
  8. ASPIRIN [Concomitant]

REACTIONS (2)
  - Haemoptysis [None]
  - Extra dose administered [None]
